FAERS Safety Report 10623180 (Version 1)
Quarter: 2014Q4

REPORT INFORMATION
  Report Type: Spontaneous
  Country: US (occurrence: None)
  Receive Date: 20141202
  Receipt Date: 20141202
  Transmission Date: 20150529
  Serious: No
  Sender: FDA-Public Use
  Company Number: None

PATIENT
  Age: 41 Year
  Sex: Female
  Weight: 65.77 kg

DRUGS (1)
  1. SCOPOLAMINE [Suspect]
     Active Substance: SCOPOLAMINE
     Indication: PROPHYLAXIS OF NAUSEA AND VOMITING
     Dates: start: 20141125, end: 20141127

REACTIONS (5)
  - Visual impairment [None]
  - Oral candidiasis [None]
  - Dry mouth [None]
  - Stomatitis [None]
  - Photosensitivity reaction [None]

NARRATIVE: CASE EVENT DATE: 20141125
